FAERS Safety Report 7291907-9 (Version None)
Quarter: 2011Q1

REPORT INFORMATION
  Report Type: 
  Country: None (occurrence: None)
  Receive Date: 20110214
  Receipt Date: 20110207
  Transmission Date: 20110831
  Serious: Yes (Hospitalization)
  Sender: FDA-Public Use
  Company Number: IE-MEDIMMUNE-MEDI-0012474

PATIENT
  Sex: Female
  Weight: 9.86 kg

DRUGS (4)
  1. SPIRONOLACTONE [Concomitant]
  2. FUROSEMIDE [Concomitant]
  3. SYNAGIS [Suspect]
     Route: 030
     Dates: start: 20091221, end: 20091221
  4. SYNAGIS [Suspect]
     Route: 030
     Dates: start: 20101216, end: 20101216

REACTIONS (1)
  - PNEUMONIA [None]
